FAERS Safety Report 8202623-0 (Version None)
Quarter: 2012Q1

REPORT INFORMATION
  Report Type: 
  Country: None (occurrence: None)
  Receive Date: 20120312
  Receipt Date: 20120308
  Transmission Date: 20120608
  Serious: Yes (Hospitalization, Other)
  Sender: FDA-Public Use
  Company Number: JP-PFIZER INC-2012061630

PATIENT
  Age: 35 Year
  Sex: Male

DRUGS (1)
  1. CELECOXIB [Suspect]
     Indication: POSTOPERATIVE ANALGESIA
     Dosage: 400 MG, 1X/DAY
     Route: 048
     Dates: start: 20120306, end: 20120306

REACTIONS (3)
  - MENINGITIS BACTERIAL [None]
  - DRUG ERUPTION [None]
  - CELLULITIS [None]
